FAERS Safety Report 7676509-4 (Version None)
Quarter: 2011Q3

REPORT INFORMATION
  Report Type: 
  Country: None (occurrence: None)
  Receive Date: 20110811
  Receipt Date: 20110808
  Transmission Date: 20111222
  Serious: Yes (Hospitalization, Other)
  Sender: FDA-Public Use
  Company Number: US-ABBOTT-11P-163-0837234-00

PATIENT
  Sex: Male
  Weight: 74.002 kg

DRUGS (19)
  1. HUMIRA [Suspect]
     Dates: start: 20110601
  2. FUROSEMIDE [Concomitant]
     Indication: PRODUCT USED FOR UNKNOWN INDICATION
  3. HUMIRA [Suspect]
     Dates: start: 20110201, end: 20110601
  4. AVINZA [Concomitant]
     Indication: BACK PAIN
  5. HUMIRA [Suspect]
     Dates: end: 20110101
  6. PROTONIX [Concomitant]
     Indication: GASTROOESOPHAGEAL REFLUX DISEASE
  7. LISINOPRIL [Concomitant]
     Indication: HYPERTENSION
  8. ADVAIR DISKUS 100/50 [Concomitant]
     Indication: PRODUCT USED FOR UNKNOWN INDICATION
  9. PLAVIX [Concomitant]
     Indication: BLOOD CHOLESTEROL INCREASED
  10. FEXOFENADINE HCL [Concomitant]
     Indication: HYPERSENSITIVITY
  11. BACLOFEN [Concomitant]
     Indication: CEREBROVASCULAR ACCIDENT
  12. PERCOCET [Concomitant]
     Indication: PRODUCT USED FOR UNKNOWN INDICATION
  13. LIDOCAINE [Concomitant]
     Indication: PRODUCT USED FOR UNKNOWN INDICATION
     Dosage: ON BACK DAILY
  14. HUMIRA [Suspect]
     Indication: RHEUMATOID ARTHRITIS
     Dates: start: 20050221
  15. PREDNISONE [Suspect]
     Indication: PRODUCT USED FOR UNKNOWN INDICATION
  16. METHOTREXATE [Concomitant]
     Indication: PRODUCT USED FOR UNKNOWN INDICATION
  17. CRESTOR [Concomitant]
     Indication: PRODUCT USED FOR UNKNOWN INDICATION
  18. METOPROLOL TARTRATE [Concomitant]
     Indication: HYPERTENSION
  19. BACLOFEN [Concomitant]
     Indication: PHARYNGEAL DISORDER

REACTIONS (13)
  - PNEUMONIA [None]
  - MOBILITY DECREASED [None]
  - DIABETES MELLITUS [None]
  - DRUG INEFFECTIVE [None]
  - PRODUCTIVE COUGH [None]
  - SKIN HAEMORRHAGE [None]
  - HAEMOPTYSIS [None]
  - APPARENT DEATH [None]
  - LIPOMA [None]
  - SURGERY [None]
  - RESPIRATORY FAILURE [None]
  - LENTIGO [None]
  - RHEUMATOID ARTHRITIS [None]
